FAERS Safety Report 10170350 (Version 2)
Quarter: 2014Q2

REPORT INFORMATION
  Report Type: Spontaneous
  Country: US (occurrence: US)
  Receive Date: 20140513
  Receipt Date: 20140513
  Transmission Date: 20141212
  Serious: No
  Sender: FDA-Public Use
  Company Number: US-GILEAD-2014-0095372

PATIENT
  Age: 71 Year
  Sex: Female
  Weight: 85.26 kg

DRUGS (2)
  1. LETAIRIS [Suspect]
     Indication: PULMONARY ARTERIAL HYPERTENSION
     Dosage: 5 MG, QD
     Route: 065
     Dates: start: 20131112, end: 20140121
  2. LETAIRIS [Suspect]
     Indication: CARDIAC DISORDER

REACTIONS (2)
  - Dyspnoea [Not Recovered/Not Resolved]
  - Fluid retention [Unknown]
